FAERS Safety Report 8076955-3 (Version None)
Quarter: 2012Q1

REPORT INFORMATION
  Report Type: 
  Country: None (occurrence: None)
  Receive Date: 20120127
  Receipt Date: 20120125
  Transmission Date: 20120608
  Serious: Yes (Death, Hospitalization)
  Sender: FDA-Public Use
  Company Number: US-GLAXOSMITHKLINE-A0814598A

PATIENT
  Age: 80 Year
  Sex: Female

DRUGS (4)
  1. NEURONTIN [Concomitant]
  2. AVANDIA [Suspect]
     Indication: TYPE 2 DIABETES MELLITUS
     Dosage: 4MG PER DAY
     Route: 048
  3. PREVACID [Concomitant]
  4. DETROL [Concomitant]

REACTIONS (6)
  - BLOOD CHOLESTEROL INCREASED [None]
  - BLOOD TRIGLYCERIDES INCREASED [None]
  - CEREBROVASCULAR ACCIDENT [None]
  - AORTIC ANEURYSM RUPTURE [None]
  - TRANSIENT ISCHAEMIC ATTACK [None]
  - CARDIAC FAILURE CONGESTIVE [None]
